FAERS Safety Report 5823502-X (Version None)
Quarter: 2008Q3

REPORT INFORMATION
  Report Type: 
  Country: None (occurrence: None)
  Receive Date: 20080725
  Receipt Date: 20080718
  Transmission Date: 20090109
  Serious: Yes (Hospitalization)
  Sender: FDA-Public Use
  Company Number: IT-ELI_LILLY_AND_COMPANY-IT200807003612

PATIENT
  Sex: Male

DRUGS (3)
  1. FORTEO [Suspect]
     Indication: OSTEOPOROSIS
     Dosage: 20 UG, DAILY (1/D)
     Route: 058
     Dates: start: 20080510, end: 20080531
  2. TESTOSTERONE ENANTHATE [Concomitant]
     Indication: HYPOGONADISM
     Dosage: 250 MG, ALTERNATE DAYS
     Route: 030
     Dates: start: 20070910, end: 20080531
  3. COLECALCIFEROL [Concomitant]
     Indication: HYPOVITAMINOSIS
     Dosage: 100000 IU, TOTAL
     Route: 048
     Dates: start: 20080430, end: 20080430

REACTIONS (1)
  - RASH PUSTULAR [None]
